APPROVED DRUG PRODUCT: GUANFACINE HYDROCHLORIDE
Active Ingredient: GUANFACINE HYDROCHLORIDE
Strength: EQ 3MG BASE
Dosage Form/Route: TABLET, EXTENDED RELEASE;ORAL
Application: A205689 | Product #003
Applicant: SUN PHARMACEUTICAL INDUSTRIES LTD
Approved: Nov 16, 2017 | RLD: No | RS: No | Type: DISCN